FAERS Safety Report 16487407 (Version 1)
Quarter: 2019Q2

REPORT INFORMATION
  Report Type: Spontaneous
  Country: US (occurrence: US)
  Receive Date: 20190627
  Receipt Date: 20190627
  Transmission Date: 20190711
  Serious: No
  Sender: FDA-Public Use
  Company Number: US-009507513-1906USA009541

PATIENT
  Sex: Female

DRUGS (1)
  1. MAXALT-MLT [Suspect]
     Active Substance: RIZATRIPTAN BENZOATE
     Dosage: 10 MG 1 RAPID DISSOLVE TABLET AS NEEDED PER 24 HOURS
     Route: 048

REACTIONS (2)
  - No adverse event [Unknown]
  - Expired product administered [Unknown]
